FAERS Safety Report 14359712 (Version 1)
Quarter: 2018Q1

REPORT INFORMATION
  Report Type: Spontaneous
  Country: US (occurrence: US)
  Receive Date: 20180105
  Receipt Date: 20180105
  Transmission Date: 20180509
  Serious: No
  Sender: FDA-Public Use
  Company Number: -SAAVPROD-BI2017BI013090

PATIENT
  Sex: Female

DRUGS (1)
  1. RANITIDINE HYDROCHLORIDE. [Suspect]
     Active Substance: RANITIDINE HYDROCHLORIDE
     Indication: PRODUCT USED FOR UNKNOWN INDICATION
     Dosage: ONE TABLET BID;  FORM STRENGTH: 150 MG; FORMULATION: TABLET? ADMINISTRATION CORRECT? NO ?ACTION(S) T
     Route: 048
     Dates: start: 201606

REACTIONS (4)
  - Off label use [Unknown]
  - Dizziness [Unknown]
  - Blood glucose decreased [Unknown]
  - Abdominal pain [Unknown]

NARRATIVE: CASE EVENT DATE: 201606
